FAERS Safety Report 16361854 (Version 5)
Quarter: 2020Q1

REPORT INFORMATION
  Report Type: Spontaneous
  Country: US (occurrence: US)
  Receive Date: 20190528
  Receipt Date: 20200122
  Transmission Date: 20200409
  Serious: Yes (Other)
  Sender: FDA-Public Use
  Company Number: US-PFIZER INC-2019225180

PATIENT
  Age: 40 Year
  Sex: Male

DRUGS (25)
  1. GEODON [Concomitant]
     Active Substance: ZIPRASIDONE HYDROCHLORIDE\ZIPRASIDONE MESYLATE
     Dosage: 80 MG, UNK
     Dates: start: 20110301
  2. ATIVAN [Concomitant]
     Active Substance: LORAZEPAM
     Indication: AGITATION
     Dosage: 0.5 MG, AS NEEDED, EVERY 4 HOURS
     Route: 030
  3. INVEGA SUSTENNA [Concomitant]
     Active Substance: PALIPERIDONE PALMITATE
     Indication: PSYCHOTIC DISORDER
     Dosage: 1.5 ML, MONTHLY
     Route: 030
     Dates: start: 20160908, end: 20170907
  4. VALIUM [Concomitant]
     Active Substance: DIAZEPAM
     Indication: SEIZURE
     Dosage: 5 MG, UNK
     Route: 042
  5. BENZTROPINE. [Concomitant]
     Active Substance: BENZTROPINE
     Dosage: 0.5 MG, 1X/DAY
     Route: 048
     Dates: start: 20170105
  6. TEMAZEPAM. [Concomitant]
     Active Substance: TEMAZEPAM
     Indication: PAIN
     Dosage: 15 MG, AS NEEDED
  7. MAGNESIUM HYDROXIDE. [Concomitant]
     Active Substance: MAGNESIUM HYDROXIDE
     Indication: CONSTIPATION
     Dosage: 30 ML, AS NEEDED, SUSPENSION
     Route: 048
  8. TYLENOL [Concomitant]
     Active Substance: ACETAMINOPHEN
     Indication: PAIN
     Dosage: 325 MG, AS NEEDED, EVERY 4 HOURS
     Route: 048
  9. DEPAKOTE ER [Concomitant]
     Active Substance: DIVALPROEX SODIUM
     Dosage: 500 MG, 3X/DAY
     Route: 048
     Dates: start: 20181218
  10. LUMINAL [Concomitant]
     Active Substance: PHENOBARBITAL SODIUM
     Indication: SEIZURE
     Dosage: 64.8 MG, 3X/DAY
     Route: 048
  11. KEPPRA [Concomitant]
     Active Substance: LEVETIRACETAM
     Indication: SEIZURE
     Dosage: 500 MG, 2X/DAY
     Route: 048
  12. PHENOBARBITAL. [Concomitant]
     Active Substance: PHENOBARBITAL
     Indication: SEIZURE
     Dosage: 30 MG, DAILY
     Route: 048
  13. INVEGA [Concomitant]
     Active Substance: PALIPERIDONE
     Indication: PSYCHOTIC DISORDER
     Dosage: UNK UNK, MONTHLY
  14. INVEGA SUSTENNA [Concomitant]
     Active Substance: PALIPERIDONE PALMITATE
     Dosage: 1.5 ML, MONTHLY
     Route: 030
     Dates: start: 20190723
  15. RISPERDAL [Concomitant]
     Active Substance: RISPERIDONE
     Dosage: 4 MG, 1X/DAY, BED TIME
  16. DILANTIN [Suspect]
     Active Substance: PHENYTOIN
     Indication: SEIZURE
     Dosage: 100 MG, 3X/DAY
     Route: 048
  17. RISPERDAL [Concomitant]
     Active Substance: RISPERIDONE
     Indication: PSYCHOTIC DISORDER
     Dosage: 1 MG, 2X/DAY, FOR 30 DAYS
     Route: 048
  18. COGENTIN [Concomitant]
     Active Substance: BENZTROPINE MESYLATE
     Indication: SEIZURE
     Dosage: 0.5 MG, 2X/DAY
     Route: 048
  19. HALOPERIDOL LACTATE. [Concomitant]
     Active Substance: HALOPERIDOL LACTATE
     Indication: AGITATION
     Dosage: 5 MG, AS NEEDED, EVERY 4 HOURS
     Route: 030
  20. DOCUSATE SODIUM. [Concomitant]
     Active Substance: DOCUSATE SODIUM
     Indication: CONSTIPATION
     Dosage: 100 MG, AS NEEDED
     Route: 048
  21. INVEGA SUSTENNA [Concomitant]
     Active Substance: PALIPERIDONE PALMITATE
     Dosage: 1 ML, MONTHLY
     Route: 030
     Dates: start: 20170907
  22. DILANTIN [Suspect]
     Active Substance: PHENYTOIN
     Indication: SEIZURE
     Dosage: 100 MG, 3X/DAY, AS NEEDED
     Route: 048
  23. HALDOL [Concomitant]
     Active Substance: HALOPERIDOL
     Indication: AGITATION
     Dosage: 5 MG, AS NEEDED, EVERY 4 HOURS
     Route: 048
  24. DILANTIN [Suspect]
     Active Substance: PHENYTOIN
     Dosage: 100 MG, ALTERNATE DAY
     Route: 048
     Dates: start: 20100108
  25. RISPERDAL CONSTA [Concomitant]
     Active Substance: RISPERIDONE
     Dosage: 3 ML (37.5 MG), EVERY 14 DAYS
     Route: 042

REACTIONS (9)
  - Limb injury [Unknown]
  - Electrolyte imbalance [Unknown]
  - Speech disorder [Unknown]
  - Migraine [Unknown]
  - Insomnia [Unknown]
  - Dystonia [Unknown]
  - Eye disorder [Recovered/Resolved]
  - Cerebellar atrophy [Unknown]
  - Emotional disorder [Unknown]

NARRATIVE: CASE EVENT DATE: 20110228
